FAERS Safety Report 5080128-6 (Version None)
Quarter: 2006Q3

REPORT INFORMATION
  Report Type: 
  Country: None (occurrence: None)
  Receive Date: 20060810
  Receipt Date: 20060725
  Transmission Date: 20061208
  Serious: Yes (Hospitalization)
  Sender: FDA-Public Use
  Company Number: ENTC2006-0084

PATIENT
  Age: 68 Year
  Sex: Male

DRUGS (3)
  1. STALEVO 50 [Suspect]
     Indication: PARKINSON'S DISEASE
     Dosage: 450 MG, 3 IN 1 , ORAL
     Route: 048
     Dates: start: 20040101
  2. LITHIUM [Concomitant]
  3. WELLBUTRIN [Concomitant]

REACTIONS (7)
  - APHASIA [None]
  - FALL [None]
  - GENERAL PHYSICAL HEALTH DETERIORATION [None]
  - GRIP STRENGTH DECREASED [None]
  - HEAD INJURY [None]
  - VOMITING [None]
  - WEIGHT DECREASED [None]
